FAERS Safety Report 19257123 (Version 3)
Quarter: 2021Q3

REPORT INFORMATION
  Report Type: Spontaneous
  Country: US (occurrence: US)
  Receive Date: 20210513
  Receipt Date: 20210714
  Transmission Date: 20211014
  Serious: No
  Sender: FDA-Public Use
  Company Number: US-SA-2021SA157732

PATIENT
  Age: 30 Year
  Sex: Male

DRUGS (1)
  1. LANTUS SOLOSTAR [Suspect]
     Active Substance: INSULIN GLARGINE
     Indication: TYPE 1 DIABETES MELLITUS
     Dosage: 16 IU, QD
     Route: 065

REACTIONS (3)
  - Device operational issue [Recovered/Resolved]
  - Incorrect dose administered by device [Recovered/Resolved]
  - Blood glucose increased [Recovered/Resolved]
